FAERS Safety Report 7778728-5 (Version None)
Quarter: 2011Q3

REPORT INFORMATION
  Report Type: 
  Country: None (occurrence: None)
  Receive Date: 20110926
  Receipt Date: 20110914
  Transmission Date: 20111222
  Serious: Yes (Hospitalization)
  Sender: FDA-Public Use
  Company Number: US-BAYER-2011-089212

PATIENT
  Age: 35 Year
  Sex: Female
  Weight: 59.41 kg

DRUGS (11)
  1. YASMIN [Suspect]
     Indication: CONTRACEPTION
     Dosage: UNK
     Dates: start: 20010201, end: 20080301
  2. YAZ [Suspect]
     Indication: CONTRACEPTION
     Dosage: UNK
     Dates: start: 20010201, end: 20080301
  3. IMURAN [Concomitant]
     Indication: CROHN'S DISEASE
     Dosage: 50 MG, QID
     Route: 048
     Dates: start: 20010101
  4. MULTI-VITAMINS [Concomitant]
     Dosage: UNK UNK, ONCE
     Route: 048
  5. FLEXERIL [Concomitant]
     Dosage: 10 MG, TID
     Route: 048
  6. BENTYL [Concomitant]
     Dosage: 10 MG, PRN
     Route: 048
  7. PHENERGAN HCL [Concomitant]
     Indication: NAUSEA
     Dosage: UNK
     Route: 048
     Dates: start: 19990101
  8. TYLENOL W/ CODEINE NO. 3 [Concomitant]
     Dosage: UNK UNK, PRN
     Route: 048
  9. PROTONIX [Concomitant]
     Indication: GASTROOESOPHAGEAL REFLUX DISEASE
     Dosage: 20 MG, ONCE
     Route: 048
     Dates: start: 20060101
  10. FIORICET [Concomitant]
     Dosage: UNK UNK, BID
     Route: 048
  11. TOPAMAX [Concomitant]
     Dosage: 25 MG, UNK
     Route: 048

REACTIONS (2)
  - PULMONARY EMBOLISM [None]
  - DEEP VEIN THROMBOSIS [None]
